FAERS Safety Report 10620179 (Version 2)
Quarter: 2015Q1

REPORT INFORMATION
  Report Type: Spontaneous
  Country: FR (occurrence: None)
  Receive Date: 20141128
  Receipt Date: 20150219
  Transmission Date: 20150720
  Serious: Yes (Hospitalization)
  Sender: FDA-Public Use
  Company Number: 2633206

PATIENT
  Age: 59 Year
  Sex: Male

DRUGS (9)
  1. POLARAMINE [Concomitant]
     Active Substance: DEXCHLORPHENIRAMINE MALEATE
  2. ONDANSETRON [Concomitant]
     Active Substance: ONDANSETRON
  3. CARBOPLATIN. [Suspect]
     Active Substance: CARBOPLATIN
     Indication: PRODUCT USED FOR UNKNOWN INDICATION
     Route: 042
     Dates: start: 20131206
  4. VENOFER [Concomitant]
     Active Substance: IRON SUCROSE
  5. METHYLPREDNISOLONE. [Concomitant]
     Active Substance: METHYLPREDNISOLONE
  6. AZANTAC [Concomitant]
     Active Substance: RANITIDINE HYDROCHLORIDE
  7. ZOMETA [Concomitant]
     Active Substance: ZOLEDRONIC ACID
  8. TAXOL [Suspect]
     Active Substance: PACLITAXEL
     Indication: PRODUCT USED FOR UNKNOWN INDICATION
     Route: 048
     Dates: start: 20131206
  9. EMEND [Concomitant]
     Active Substance: APREPITANT

REACTIONS (3)
  - Anaemia [None]
  - Asthenia [None]
  - Dyspnoea exertional [None]

NARRATIVE: CASE EVENT DATE: 20140513
